FAERS Safety Report 25896992 (Version 1)
Quarter: 2025Q4

REPORT INFORMATION
  Report Type: Spontaneous
  Country: EU (occurrence: EU)
  Receive Date: 20251008
  Receipt Date: 20251008
  Transmission Date: 20260119
  Serious: Yes (Disabling, Other)
  Sender: BAYER HEALTHCARE PHARMACEUTICALS INC.
  Company Number: None

PATIENT
  Age: 51 Year
  Sex: Female
  Weight: 67 kg

DRUGS (2)
  1. CIPROFLOXACIN [Suspect]
     Active Substance: CIPROFLOXACIN
     Indication: Antibiotic prophylaxis
     Dosage: 3CP PAR JOUR
     Route: 048
     Dates: start: 20230721, end: 20230724
  2. CIPROFLOXACIN [Suspect]
     Active Substance: CIPROFLOXACIN
     Indication: Gastroenteritis salmonella

REACTIONS (34)
  - Disability [None]
  - Suicidal ideation [None]
  - Musculoskeletal pain [Not Recovered/Not Resolved]
  - Gait disturbance [Not Recovered/Not Resolved]
  - Joint stiffness [None]
  - Tendon pain [None]
  - Fatigue [None]
  - Sick leave [None]
  - Myalgia [None]
  - Burning sensation [None]
  - Sleep disorder [None]
  - Depression [None]
  - Disturbance in attention [None]
  - Brain fog [Not Recovered/Not Resolved]
  - Muscle contractions involuntary [None]
  - Weight increased [None]
  - Alopecia [None]
  - Muscle tightness [None]
  - Photosensitivity reaction [None]
  - Hypoaesthesia [None]
  - Electric shock sensation [None]
  - Insomnia [None]
  - Feeling cold [None]
  - Pain [None]
  - Abdominal pain [Recovered/Resolved]
  - Ankle deformity [None]
  - Oedema peripheral [None]
  - Joint swelling [None]
  - Muscle contractions involuntary [None]
  - Tremor [None]
  - Memory impairment [None]
  - Anxiety [None]
  - Neuralgia [None]
  - Arthropathy [None]

NARRATIVE: CASE EVENT DATE: 20230725
